FAERS Safety Report 6082712-X (Version None)
Quarter: 2009Q1

REPORT INFORMATION
  Report Type: 
  Country: None (occurrence: None)
  Receive Date: 20090218
  Receipt Date: 20090131
  Transmission Date: 20090719
  Serious: Yes (Hospitalization)
  Sender: FDA-Public Use
  Company Number: NZ-BAYER-200912784GPV

PATIENT
  Age: 45 Year
  Sex: Female

DRUGS (1)
  1. ASPIRIN [Suspect]
     Indication: ALLERGENIC DESENSITISATION PROCEDURE
     Route: 048

REACTIONS (5)
  - ANGINA UNSTABLE [None]
  - ARTERIOSPASM CORONARY [None]
  - ELECTROCARDIOGRAM ST SEGMENT DEPRESSION [None]
  - EOSINOPHILIA [None]
  - TROPONIN T INCREASED [None]
